FAERS Safety Report 5850349-0 (Version None)
Quarter: 2008Q3

REPORT INFORMATION
  Report Type: 
  Country: None (occurrence: None)
  Receive Date: 20080819
  Receipt Date: 20080812
  Transmission Date: 20090109
  Serious: Yes (Hospitalization)
  Sender: FDA-Public Use
  Company Number: JP-MERCK-0807USA01418

PATIENT
  Age: 72 Year
  Sex: Female

DRUGS (3)
  1. ZETIA [Suspect]
     Indication: HYPERLIPIDAEMIA
     Route: 048
     Dates: start: 20071001, end: 20080514
  2. ATORVASTATIN CALCIUM [Concomitant]
     Route: 065
     Dates: start: 20071001, end: 20080515
  3. GLIMEPIRIDE [Concomitant]
     Route: 065
     Dates: start: 20070401

REACTIONS (1)
  - MYOSITIS [None]
